FAERS Safety Report 5487031-8 (Version None)
Quarter: 2007Q4

REPORT INFORMATION
  Report Type: 
  Country: None (occurrence: None)
  Receive Date: 20071012
  Receipt Date: 20071012
  Transmission Date: 20080405
  Serious: Yes (Hospitalization, Other)
  Sender: FDA-Public Use
  Company Number: None

PATIENT
  Age: 31 Year
  Sex: Male
  Weight: 117.9352 kg

DRUGS (1)
  1. CHANTIX [Suspect]
     Indication: SMOKING CESSATION THERAPY
     Dosage: 1    2 A DAY   PO
     Route: 048
     Dates: start: 20070501, end: 20070619

REACTIONS (7)
  - ARRHYTHMIA [None]
  - EXTRASYSTOLES [None]
  - INSOMNIA [None]
  - NAUSEA [None]
  - RESPIRATORY DISORDER [None]
  - VENTRICULAR EXTRASYSTOLES [None]
  - WEIGHT INCREASED [None]
